FAERS Safety Report 4668814-0 (Version None)
Quarter: 2005Q2

REPORT INFORMATION
  Report Type: 
  Country: None (occurrence: None)
  Receive Date: 20050523
  Receipt Date: 20050222
  Transmission Date: 20051028
  Serious: Yes (Other)
  Sender: FDA-Public Use
  Company Number: PHNU2005DE01046

PATIENT
  Age: 56 Year
  Sex: Female
  Weight: 78 kg

DRUGS (5)
  1. ZOMETA [Suspect]
     Indication: METASTASES TO BONE
     Dosage: 4 MG, QMO
     Route: 042
     Dates: start: 20030506, end: 20041221
  2. AROMASIN [Concomitant]
     Indication: BREAST CANCER METASTATIC
     Dosage: 25 MG, QD
     Route: 048
     Dates: start: 20030506
  3. DURAGESIC-100 [Concomitant]
     Indication: BREAST CANCER METASTATIC
     Route: 058
     Dates: start: 20030513
  4. MITOXANTRONE [Concomitant]
     Indication: METASTASES TO BONE
     Dates: start: 20040511, end: 20040824
  5. RADIOTHERAPY [Concomitant]
     Indication: METASTASES TO BONE
     Route: 065
     Dates: start: 20040101, end: 20040201

REACTIONS (2)
  - OSTEOMYELITIS [None]
  - OSTEONECROSIS [None]
